FAERS Safety Report 6780389-9 (Version None)
Quarter: 2010Q2

REPORT INFORMATION
  Report Type: 
  Country: None (occurrence: None)
  Receive Date: 20100618
  Receipt Date: 20100611
  Transmission Date: 20101027
  Serious: Yes (Other)
  Sender: FDA-Public Use
  Company Number: US-AMGEN-QUU417863

PATIENT
  Sex: Male

DRUGS (16)
  1. ARANESP [Suspect]
     Indication: RENAL FAILURE CHRONIC
     Route: 058
     Dates: start: 20090701
  2. PROCRIT [Suspect]
     Indication: RENAL FAILURE CHRONIC
  3. LANTUS [Concomitant]
  4. KLOR-CON [Concomitant]
  5. METOPROLOL TARTRATE [Concomitant]
  6. CENTRUM [Concomitant]
  7. VITAMIN B-12 [Concomitant]
  8. LASIX [Concomitant]
  9. VITAMIN D [Concomitant]
  10. PANTOPRAZOLE [Concomitant]
  11. FINASTERIDE [Concomitant]
  12. FLOMAX [Concomitant]
  13. PREDNISONE [Concomitant]
  14. PANCRELIPASE [Concomitant]
  15. VITAMIN C [Concomitant]
  16. CELLCEPT [Concomitant]

REACTIONS (2)
  - APLASIA PURE RED CELL [None]
  - THERAPEUTIC RESPONSE DECREASED [None]
